FAERS Safety Report 23714962 (Version 2)
Quarter: 2024Q2

REPORT INFORMATION
  Report Type: Spontaneous
  Country: US (occurrence: None)
  Receive Date: 20240406
  Receipt Date: 20240513
  Transmission Date: 20240716
  Serious: No
  Sender: FDA-Public Use
  Company Number: 2024A081487

PATIENT
  Age: 18 Year
  Sex: Male
  Weight: 81.6 kg

DRUGS (1)
  1. FASENRA [Suspect]
     Active Substance: BENRALIZUMAB
     Indication: Asthma
     Route: 058
     Dates: start: 20230901

REACTIONS (3)
  - Dyspnoea [Unknown]
  - Pulmonary function test decreased [Unknown]
  - Drug ineffective [Unknown]
